FAERS Safety Report 25322839 (Version 1)
Quarter: 2025Q2

REPORT INFORMATION
  Report Type: Report from Study
  Country: US (occurrence: US)
  Receive Date: 20250516
  Receipt Date: 20250516
  Transmission Date: 20250716
  Serious: Yes (Other)
  Sender: ABBVIE
  Company Number: US-ABBVIE-6282871

PATIENT
  Age: 77 Year
  Sex: Female

DRUGS (1)
  1. IMBRUVICA [Suspect]
     Active Substance: IBRUTINIB
     Indication: High-grade B-cell lymphoma
     Route: 048
     Dates: start: 202504

REACTIONS (6)
  - Lymphoma [Not Recovered/Not Resolved]
  - Vomiting [Unknown]
  - Weight decreased [Unknown]
  - Oral candidiasis [Not Recovered/Not Resolved]
  - Respiratory disorder [Not Recovered/Not Resolved]
  - Tongue injury [Not Recovered/Not Resolved]

NARRATIVE: CASE EVENT DATE: 20250101
